FAERS Safety Report 7081300-6 (Version None)
Quarter: 2010Q4

REPORT INFORMATION
  Report Type: 
  Country: None (occurrence: None)
  Receive Date: 20101102
  Receipt Date: 20101102
  Transmission Date: 20110411
  Serious: Yes (Hospitalization)
  Sender: FDA-Public Use
  Company Number: None

PATIENT
  Sex: Male
  Weight: 86.6 kg

DRUGS (2)
  1. TAXOTERE [Suspect]
     Dosage: 149 MG
  2. ZOLADEX [Suspect]
     Dosage: 80 MG

REACTIONS (5)
  - COLD SWEAT [None]
  - HYPOAESTHESIA [None]
  - NAUSEA [None]
  - THERAPEUTIC EMBOLISATION [None]
  - VOMITING [None]
